FAERS Safety Report 6532635-4 (Version None)
Quarter: 2010Q1

REPORT INFORMATION
  Report Type: 
  Country: None (occurrence: None)
  Receive Date: 20100111
  Receipt Date: 20091211
  Transmission Date: 20100710
  Serious: No
  Sender: FDA-Public Use
  Company Number: US-BAYER-200942362NA

PATIENT
  Sex: Male

DRUGS (1)
  1. CIPRO [Suspect]
     Indication: DRUG USE FOR UNKNOWN INDICATION
     Dosage: THREE TIMES FROM 1991-1992
     Dates: start: 19910101, end: 19920101

REACTIONS (1)
  - ANXIETY DISORDER [None]
